FAERS Safety Report 12472751 (Version 1)
Quarter: 2016Q2

REPORT INFORMATION
  Report Type: Spontaneous
  Country: US (occurrence: US)
  Receive Date: 20160616
  Receipt Date: 20160616
  Transmission Date: 20160815
  Serious: Yes (Hospitalization)
  Sender: FDA-Public Use
  Company Number: US-IPCA LABORATORIES LIMITED-IPC201606-000523

PATIENT
  Age: 48 Year
  Sex: Male

DRUGS (6)
  1. CARVEDILOL. [Suspect]
     Active Substance: CARVEDILOL
  2. HYDRALAZINE [Suspect]
     Active Substance: HYDRALAZINE HYDROCHLORIDE
  3. HYDROCHLOROTHIAZIDE. [Suspect]
     Active Substance: HYDROCHLOROTHIAZIDE
  4. LISINOPRIL. [Suspect]
     Active Substance: LISINOPRIL
  5. DOXAZOSIN [Suspect]
     Active Substance: DOXAZOSIN\DOXAZOSIN MESYLATE
  6. AMLODIPINE BESILATE [Suspect]
     Active Substance: AMLODIPINE BESYLATE

REACTIONS (10)
  - Overdose [Unknown]
  - Unresponsive to stimuli [Recovered/Resolved]
  - Acute kidney injury [Unknown]
  - Supraventricular tachycardia [Recovering/Resolving]
  - Blood lactic acid increased [Unknown]
  - Dilatation atrial [Recovering/Resolving]
  - Cardiomegaly [Recovering/Resolving]
  - Shock [Unknown]
  - Pulmonary oedema [Unknown]
  - Dilatation ventricular [Recovering/Resolving]
